FAERS Safety Report 10182342 (Version 1)
Quarter: 2014Q2

REPORT INFORMATION
  Report Type: Spontaneous
  Country: US (occurrence: None)
  Receive Date: 20140519
  Receipt Date: 20140519
  Transmission Date: 20141212
  Serious: Yes (Hospitalization)
  Sender: FDA-Public Use
  Company Number: None

PATIENT
  Age: 19 Year
  Sex: Male
  Weight: 68.49 kg

DRUGS (1)
  1. VENLAFAXINE [Suspect]
     Indication: MAJOR DEPRESSION
     Dosage: 150 MG ?1 PER DAY ?DAILY?BY MOUTH
     Route: 048
     Dates: start: 20140415, end: 20140419

REACTIONS (8)
  - Staring [None]
  - Aggression [None]
  - Tremor [None]
  - Panic reaction [None]
  - Amnesia [None]
  - Cognitive disorder [None]
  - Disorientation [None]
  - Altered state of consciousness [None]
